FAERS Safety Report 5104852-1 (Version None)
Quarter: 2006Q3

REPORT INFORMATION
  Report Type: 
  Country: None (occurrence: None)
  Receive Date: 20060914
  Receipt Date: 20060912
  Transmission Date: 20061208
  Serious: Yes (Other)
  Sender: FDA-Public Use
  Company Number: CA-GLAXOSMITHKLINE-A0619963A

PATIENT
  Age: 6 Year
  Sex: Male

DRUGS (1)
  1. FLOVENT [Suspect]
     Indication: DRUG USE FOR UNKNOWN INDICATION
     Route: 055

REACTIONS (4)
  - AGGRESSION [None]
  - IMPATIENCE [None]
  - PERSONALITY CHANGE [None]
  - SCREAMING [None]
